FAERS Safety Report 5680928-5 (Version None)
Quarter: 2008Q1

REPORT INFORMATION
  Report Type: 
  Country: None (occurrence: None)
  Receive Date: 20080326
  Receipt Date: 20080317
  Transmission Date: 20080703
  Serious: Yes (Other)
  Sender: FDA-Public Use
  Company Number: BR-PFIZER INC-2008025503

PATIENT
  Sex: Female

DRUGS (4)
  1. LIPITOR [Suspect]
     Route: 048
  2. SYNTHROID [Concomitant]
     Indication: HYPOTHYROIDISM
  3. METFORMIN [Concomitant]
  4. CORGARD [Concomitant]

REACTIONS (3)
  - ARRHYTHMIA [None]
  - CATARACT [None]
  - DIABETES MELLITUS [None]
